FAERS Safety Report 11131320 (Version 1)
Quarter: 2015Q2

REPORT INFORMATION
  Report Type: Spontaneous
  Country: US (occurrence: US)
  Receive Date: 20150522
  Receipt Date: 20150522
  Transmission Date: 20150821
  Serious: Yes (Other)
  Sender: FDA-Public Use
  Company Number: US-BAYER-2015-256252

PATIENT
  Sex: Female

DRUGS (1)
  1. GADAVIST [Suspect]
     Active Substance: GADOBUTROL
     Indication: NUCLEAR MAGNETIC RESONANCE IMAGING WHOLE BODY
     Dosage: 6 ML, ONCE
     Route: 042
     Dates: start: 2015

REACTIONS (1)
  - Urticaria [None]

NARRATIVE: CASE EVENT DATE: 2015
